FAERS Safety Report 18531886 (Version 1)
Quarter: 2020Q4

REPORT INFORMATION
  Report Type: Report from Study
  Country: US (occurrence: US)
  Receive Date: 20201123
  Receipt Date: 20201123
  Transmission Date: 20210114
  Serious: Yes (Hospitalization, Disabling, Other)
  Sender: FDA-Public Use
  Company Number: US-SA-2015SA043734

PATIENT

DRUGS (2)
  1. ACICLOVIR [Concomitant]
     Active Substance: ACYCLOVIR
     Dosage: UNK UNK,BID
     Route: 065
  2. ALEMTUZUMAB [Suspect]
     Active Substance: ALEMTUZUMAB
     Indication: RELAPSING-REMITTING MULTIPLE SCLEROSIS
     Dosage: 12 MG,QD
     Route: 041
     Dates: start: 20150323, end: 20150327

REACTIONS (39)
  - Muscle spasticity [Unknown]
  - Hypoaesthesia [Unknown]
  - Lymphocyte count decreased [Not Recovered/Not Resolved]
  - Multiple sclerosis relapse [Not Recovered/Not Resolved]
  - Urinary incontinence [Not Recovered/Not Resolved]
  - Frustration tolerance decreased [Not Recovered/Not Resolved]
  - Laboratory test abnormal [Not Recovered/Not Resolved]
  - Tooth extraction [Recovered/Resolved]
  - Balance disorder [Not Recovered/Not Resolved]
  - Back pain [Not Recovered/Not Resolved]
  - Feeling abnormal [Not Recovered/Not Resolved]
  - Memory impairment [Not Recovered/Not Resolved]
  - Myalgia [Unknown]
  - Paraesthesia [Unknown]
  - Dysstasia [Not Recovered/Not Resolved]
  - Gait disturbance [Not Recovered/Not Resolved]
  - Drug ineffective [Unknown]
  - Dysgraphia [Unknown]
  - Coordination abnormal [Unknown]
  - White blood cell count decreased [Not Recovered/Not Resolved]
  - Depressed mood [Unknown]
  - Skin mass [Not Recovered/Not Resolved]
  - Vertigo [Unknown]
  - Muscular weakness [Unknown]
  - General physical health deterioration [Not Recovered/Not Resolved]
  - Mobility decreased [Unknown]
  - Discomfort [Unknown]
  - Tremor [Unknown]
  - Gait disturbance [Unknown]
  - Condition aggravated [Not Recovered/Not Resolved]
  - Fall [Not Recovered/Not Resolved]
  - Scratch [Not Recovered/Not Resolved]
  - Suicidal ideation [Unknown]
  - Head discomfort [Unknown]
  - Confusional state [Not Recovered/Not Resolved]
  - Pain in extremity [Unknown]
  - T-lymphocyte count decreased [Not Recovered/Not Resolved]
  - Balance disorder [Not Recovered/Not Resolved]
  - Decreased immune responsiveness [Not Recovered/Not Resolved]

NARRATIVE: CASE EVENT DATE: 2015
